FAERS Safety Report 5035966-2 (Version None)
Quarter: 2006Q2

REPORT INFORMATION
  Report Type: 
  Country: None (occurrence: None)
  Receive Date: 20060526
  Receipt Date: 20060410
  Transmission Date: 20061013
  Serious: No
  Sender: FDA-Public Use
  Company Number: 223938

PATIENT
  Age: 74 Year
  Sex: Female

DRUGS (4)
  1. RAPTIVA [Suspect]
     Indication: PSORIASIS
     Dosage: 0.5 ML, SUBCUTANEOUS
     Route: 058
     Dates: start: 20060329
  2. CELEBREX [Concomitant]
  3. BENICAR [Concomitant]
  4. LITHIUM (LITHIUM NOS) [Concomitant]

REACTIONS (2)
  - INFLUENZA LIKE ILLNESS [None]
  - INJECTION SITE ERYTHEMA [None]
